FAERS Safety Report 5715330-0 (Version None)
Quarter: 2008Q2

REPORT INFORMATION
  Report Type: 
  Country: None (occurrence: None)
  Receive Date: 20080423
  Receipt Date: 20080422
  Transmission Date: 20081010
  Serious: Yes (Hospitalization)
  Sender: FDA-Public Use
  Company Number: FR-MERCK-0803FRA00045

PATIENT
  Age: 58 Year
  Sex: Female

DRUGS (8)
  1. COZAAR [Suspect]
     Route: 048
     Dates: start: 20071001, end: 20080108
  2. HYDROCHLOROTHIAZIDE [Suspect]
     Route: 048
     Dates: start: 20060101, end: 20080108
  3. BUMETANIDE [Suspect]
     Route: 048
     Dates: start: 20060101, end: 20080108
  4. BUMETANIDE [Suspect]
     Route: 048
     Dates: start: 20080109
  5. COLCHICINE AND OPIUM, POWDERED AND TIEMONIUM METHYLSULFATE [Concomitant]
     Indication: HYPERURICAEMIA
     Route: 048
  6. ALLOPURINOL [Concomitant]
     Indication: HYPERURICAEMIA
     Route: 048
  7. NEBIVOLOL [Concomitant]
     Route: 048
  8. ANASTROZOLE [Concomitant]
     Indication: BREAST CANCER
     Route: 048

REACTIONS (2)
  - DRUG INTERACTION [None]
  - RENAL FAILURE ACUTE [None]
